FAERS Safety Report 14882328 (Version 1)
Quarter: 2018Q2

REPORT INFORMATION
  Report Type: Spontaneous
  Country: PT (occurrence: PT)
  Receive Date: 20180511
  Receipt Date: 20180511
  Transmission Date: 20180711
  Serious: Yes (Other)
  Sender: FDA-Public Use
  Company Number: PT-GUERBET-PT-20180014

PATIENT
  Age: 56 Year
  Sex: Female

DRUGS (2)
  1. OPTIRAY 350 [Suspect]
     Active Substance: IOVERSOL
     Dosage: ()
     Route: 042
     Dates: start: 20180418, end: 20180418
  2. OPTIRAY 350 [Suspect]
     Active Substance: IOVERSOL
     Indication: COMPUTERISED TOMOGRAM
     Route: 042
     Dates: start: 20180418, end: 20180418

REACTIONS (5)
  - Rash papular [Recovered/Resolved]
  - Rash [Recovered/Resolved]
  - Contrast media reaction [Recovered/Resolved]
  - Pruritus [Recovered/Resolved]
  - Hypersensitivity [Recovered/Resolved]

NARRATIVE: CASE EVENT DATE: 20180418
